FAERS Safety Report 12886169 (Version 1)
Quarter: 2016Q4

REPORT INFORMATION
  Report Type: Spontaneous
  Country: CO (occurrence: CO)
  Receive Date: 20161026
  Receipt Date: 20161026
  Transmission Date: 20170207
  Serious: Yes (Hospitalization)
  Sender: FDA-Public Use
  Company Number: CO-PFIZER INC-2016498896

PATIENT
  Age: 7 Year
  Sex: Male

DRUGS (1)
  1. GENOTROPIN [Suspect]
     Active Substance: SOMATROPIN
     Indication: GROWTH HORMONE DEFICIENCY
     Dosage: 0.6 MG, DAILY
     Route: 058
     Dates: start: 201601

REACTIONS (9)
  - Pyrexia [Recovered/Resolved]
  - Sneezing [Recovered/Resolved]
  - Influenza [Recovered/Resolved]
  - Eye swelling [Recovered/Resolved]
  - Product quality issue [Unknown]
  - Asthma [Recovered/Resolved]
  - Rhinitis allergic [Recovered/Resolved]
  - Incorrect dose administered [Unknown]
  - Swelling face [Recovered/Resolved]

NARRATIVE: CASE EVENT DATE: 201608
